FAERS Safety Report 10038162 (Version 1)
Quarter: 2014Q1

REPORT INFORMATION
  Report Type: Spontaneous
  Country: US (occurrence: None)
  Receive Date: 20140306
  Receipt Date: 20140306
  Transmission Date: 20141002
  Serious: Yes (Hospitalization)
  Sender: FDA-Public Use
  Company Number: 163-21880-13043823

PATIENT
  Age: 81 Year
  Sex: Female

DRUGS (9)
  1. ALLOPURINOL (ALLOPURINOL) (UNKNOWN) [Concomitant]
  2. AMIODARONE HCL (AMIODARONE HYDROCHLORIDE) (UNKNOWN) [Concomitant]
  3. ARIMIDEX (ANASTROZOLE) (UNKNOWN) [Concomitant]
  4. ASPIRIN LOW DOSE (ACETYLSALICYLIC ACID) (UNKNOWN) [Concomitant]
  5. CALCIUM + D (LEKOVIT CA) (UNKNOWN) [Concomitant]
  6. DEXAMETHASONE (DEXAMETHASONE) (UNKNOWN) [Concomitant]
  7. FISH OIL (FISH OIL) (UNKNOWN) [Concomitant]
  8. HYDRALAZINE HCL (HYDRALAZINE HYDROCHLORIDE) (UNKNOWN) [Concomitant]
  9. REVLIMID [Suspect]
     Indication: PLASMA CELL MYELOMA
     Dosage: 15 MG, 21 IN 21 D, PO?TEMPORARILY INTERRUPTED
     Route: 048
     Dates: start: 20120327

REACTIONS (1)
  - Dyspnoea [None]
